FAERS Safety Report 7653618-7 (Version None)
Quarter: 2011Q3

REPORT INFORMATION
  Report Type: 
  Country: None (occurrence: None)
  Receive Date: 20110803
  Receipt Date: 20110803
  Transmission Date: 20111222
  Serious: Yes (Hospitalization)
  Sender: FDA-Public Use
  Company Number: None

PATIENT
  Age: 43 Year
  Sex: Female
  Weight: 29.483 kg

DRUGS (1)
  1. ZONEGRAN [Suspect]
     Dosage: 300
     Route: 048
     Dates: start: 20080101, end: 20110712

REACTIONS (1)
  - NEPHROLITHIASIS [None]
